FAERS Safety Report 26126298 (Version 1)
Quarter: 2025Q4

REPORT INFORMATION
  Report Type: Spontaneous
  Country: GB (occurrence: GB)
  Receive Date: 20251205
  Receipt Date: 20251205
  Transmission Date: 20260118
  Serious: Yes (Other)
  Sender: GUERBET
  Company Number: GB-MHRA-MED-202511202009513130-RLYMH

PATIENT
  Age: 40 Year
  Sex: Female
  Weight: 115 kg

DRUGS (1)
  1. GADOPICLENOL [Suspect]
     Active Substance: GADOPICLENOL
     Indication: Product used for unknown indication
     Dosage: 14 ML, SINGLE
     Dates: start: 20251120, end: 20251120

REACTIONS (2)
  - Chest discomfort [Recovered/Resolved]
  - Nausea [Recovered/Resolved]

NARRATIVE: CASE EVENT DATE: 20251120
